FAERS Safety Report 18947304 (Version 1)
Quarter: 2021Q1

REPORT INFORMATION
  Report Type: Spontaneous
  Country: US (occurrence: US)
  Receive Date: 20210226
  Receipt Date: 20210226
  Transmission Date: 20210420
  Serious: Yes (Other)
  Sender: FDA-Public Use
  Company Number: US-TEVA-2021-US-1883962

PATIENT
  Sex: Female

DRUGS (2)
  1. EPINEPHRINE TEVA [Suspect]
     Active Substance: EPINEPHRINE
     Indication: HYPERSENSITIVITY
     Dosage: 0.3MG/0.3ML
     Route: 065
     Dates: start: 2018
  2. EPINEPHRINE TEVA [Suspect]
     Active Substance: EPINEPHRINE
     Indication: ANAPHYLACTIC REACTION

REACTIONS (2)
  - Device delivery system issue [Unknown]
  - Drug ineffective [Unknown]
